FAERS Safety Report 4470010-7 (Version None)
Quarter: 2004Q3

REPORT INFORMATION
  Report Type: 
  Country: None (occurrence: None)
  Receive Date: 20040920
  Receipt Date: 20040803
  Transmission Date: 20050211
  Serious: No
  Sender: FDA-Public Use
  Company Number: A-US2004-07040

PATIENT
  Age: 16 Year
  Sex: Male

DRUGS (4)
  1. ZAVESCA [Suspect]
     Indication: GAUCHER'S DISEASE
     Dosage: 100 MG, TID, ORAL
     Route: 048
  2. DEPAKOTE [Concomitant]
  3. CELEBREX [Concomitant]
  4. RISPERDAL [Concomitant]

REACTIONS (1)
  - DIARRHOEA [None]
